FAERS Safety Report 18331499 (Version 1)
Quarter: 2020Q3

REPORT INFORMATION
  Report Type: Spontaneous
  Country: CA (occurrence: CA)
  Receive Date: 20200930
  Receipt Date: 20200930
  Transmission Date: 20201103
  Serious: Yes (Other)
  Sender: FDA-Public Use
  Company Number: CA-JNJFOC-20200944451

PATIENT
  Age: 61 Year
  Sex: Female
  Weight: 63 kg

DRUGS (16)
  1. ROSUVASTATIN CALCIUM. [Concomitant]
     Active Substance: ROSUVASTATIN CALCIUM
     Indication: DYSLIPIDAEMIA
     Route: 048
  2. SUMATRIPTAN SUCCINATE. [Concomitant]
     Active Substance: SUMATRIPTAN SUCCINATE
     Dosage: AS REQUIRED
     Route: 048
  3. CALCIUM W/COLECALCIFEROL [Concomitant]
     Active Substance: CALCIUM\CHOLECALCIFEROL
     Route: 065
  4. ENTOCORT [Concomitant]
     Active Substance: BUDESONIDE
     Route: 048
  5. IBUPROFEN. [Concomitant]
     Active Substance: IBUPROFEN
     Dosage: AS REQUIRED
     Route: 065
  6. IRON [Concomitant]
     Active Substance: IRON
     Route: 048
  7. IRON SULPHATE [Concomitant]
     Active Substance: FERROUS SULFATE ANHYDROUS
     Route: 065
  8. BENADRYL [Concomitant]
     Active Substance: DIPHENHYDRAMINE HYDROCHLORIDE
     Route: 048
  9. GLUMETZA [Concomitant]
     Active Substance: METFORMIN HYDROCHLORIDE
     Indication: DIABETES MELLITUS
     Route: 048
  10. ENTOCORT [Concomitant]
     Active Substance: BUDESONIDE
     Route: 048
  11. ERGOCALCIFEROL. [Concomitant]
     Active Substance: ERGOCALCIFEROL
     Route: 065
  12. INFLIXIMAB, RECOMBINANT [Suspect]
     Active Substance: INFLIXIMAB
     Indication: CROHN^S DISEASE
     Route: 042
  13. ACYCLOVIR                          /00587301/ [Concomitant]
     Active Substance: ACYCLOVIR
     Indication: ORAL HERPES
     Dosage: AS REQUIRED
     Route: 065
  14. BETAXOLOL HYDROCHLORIDE. [Concomitant]
     Active Substance: BETAXOLOL HYDROCHLORIDE
     Route: 047
  15. IBUPROFEN. [Concomitant]
     Active Substance: IBUPROFEN
     Route: 065
  16. LINAGLIPTIN [Concomitant]
     Active Substance: LINAGLIPTIN
     Indication: DIABETES MELLITUS
     Route: 048

REACTIONS (18)
  - Dysgeusia [Not Recovered/Not Resolved]
  - Expired product administered [Not Recovered/Not Resolved]
  - Incorrect product administration duration [Not Recovered/Not Resolved]
  - Flushing [Not Recovered/Not Resolved]
  - Inappropriate schedule of product administration [Not Recovered/Not Resolved]
  - Myalgia [Not Recovered/Not Resolved]
  - Uveitis [Not Recovered/Not Resolved]
  - Drug level below therapeutic [Not Recovered/Not Resolved]
  - Pharyngeal swelling [Not Recovered/Not Resolved]
  - Off label use [Not Recovered/Not Resolved]
  - Incorrect dose administered [Not Recovered/Not Resolved]
  - Blood pressure fluctuation [Not Recovered/Not Resolved]
  - Arthralgia [Not Recovered/Not Resolved]
  - Erythema nodosum [Not Recovered/Not Resolved]
  - Oropharyngeal pain [Not Recovered/Not Resolved]
  - Heart rate increased [Not Recovered/Not Resolved]
  - Crohn^s disease [Not Recovered/Not Resolved]
  - Pain [Not Recovered/Not Resolved]
